FAERS Safety Report 4642638-2 (Version None)
Quarter: 2005Q2

REPORT INFORMATION
  Report Type: 
  Country: None (occurrence: None)
  Receive Date: 20050420
  Receipt Date: 20050407
  Transmission Date: 20051028
  Serious: Yes (Life-Threatening)
  Sender: FDA-Public Use
  Company Number: 2005050969

PATIENT
  Sex: 0

DRUGS (1)
  1. FRAGMIN [Suspect]
     Indication: DEEP VEIN THROMBOSIS
     Dosage: 5000 I. U. (5000 I. U. , AS NECESSARY), SUBCUTANEOUS
     Route: 058
     Dates: start: 20050325, end: 20050325

REACTIONS (1)
  - ANAPHYLACTIC SHOCK [None]
